FAERS Safety Report 22191614 (Version 1)
Quarter: 2023Q2

REPORT INFORMATION
  Report Type: Report from Study
  Country: US (occurrence: US)
  Receive Date: 20230410
  Receipt Date: 20230410
  Transmission Date: 20230721
  Serious: Yes (Hospitalization)
  Sender: FDA-Public Use
  Company Number: US-GILEAD-2023-0623519

PATIENT
  Sex: Female

DRUGS (7)
  1. AZTREONAM LYSINE [Suspect]
     Active Substance: AZTREONAM LYSINE
     Indication: Product used for unknown indication
     Dosage: 75 MG, TID,INHALE 75 MG 3 TIMES DAILY FOR 28 DAYS ALTERNATING WITH TOBRAMYCIN AND COLISTIN
     Route: 055
  2. TRIKAFTA [Concomitant]
     Active Substance: ELEXACAFTOR\IVACAFTOR\TEZACAFTOR
  3. CREON [Concomitant]
     Active Substance: PANCRELIPASE AMYLASE\PANCRELIPASE LIPASE\PANCRELIPASE PROTEASE
  4. VITAMIN K [Concomitant]
     Active Substance: PHYTONADIONE
  5. PULMOZYME [Concomitant]
     Active Substance: DORNASE ALFA
  6. TOBRAMYCIN [Concomitant]
     Active Substance: TOBRAMYCIN
  7. COLISTIN [Concomitant]
     Active Substance: COLISTIN

REACTIONS (1)
  - Infection [Unknown]
